FAERS Safety Report 6519794-4 (Version None)
Quarter: 2009Q4

REPORT INFORMATION
  Report Type: 
  Country: None (occurrence: None)
  Receive Date: 20091228
  Receipt Date: 20091228
  Transmission Date: 20100525
  Serious: No
  Sender: FDA-Public Use
  Company Number: None

PATIENT
  Sex: Male
  Weight: 70.9 kg

DRUGS (1)
  1. LORAZEPAM [Suspect]
     Dosage: 2MG 3 TIMES A DAY PO
     Route: 048
     Dates: start: 20091213, end: 20091218

REACTIONS (5)
  - ABNORMAL BEHAVIOUR [None]
  - COGNITIVE DISORDER [None]
  - IMPULSIVE BEHAVIOUR [None]
  - INTENTIONAL SELF-INJURY [None]
  - RESTLESSNESS [None]
